FAERS Safety Report 4673913-3 (Version None)
Quarter: 2005Q2

REPORT INFORMATION
  Report Type: 
  Country: None (occurrence: None)
  Receive Date: 20050525
  Receipt Date: 20041220
  Transmission Date: 20051028
  Serious: Yes (Hospitalization, Disabling)
  Sender: FDA-Public Use
  Company Number: DE-MERCK-0412DEU00196

PATIENT
  Age: 64 Year
  Sex: Male
  Weight: 73 kg

DRUGS (2)
  1. VIOXX [Suspect]
     Route: 048
     Dates: start: 20040101, end: 20041001
  2. CERTOPARIN SODIUM [Concomitant]
     Route: 051

REACTIONS (7)
  - CONSTIPATION [None]
  - DIARRHOEA [None]
  - FATIGUE [None]
  - INTESTINAL INFARCTION [None]
  - NAUSEA [None]
  - OSTEOMYELITIS [None]
  - PULMONARY EMBOLISM [None]
